FAERS Safety Report 8761700 (Version 1)
Quarter: 2012Q4

REPORT INFORMATION
  Report Type: Spontaneous
  Country: US (occurrence: None)
  Receive Date: 20120830
  Receipt Date: 20120830
  Transmission Date: 20130627
  Serious: Yes (Other)
  Sender: FDA-Public Use
  Company Number: None

PATIENT
  Age: 46 Year
  Sex: Male
  Weight: 122.47 kg

DRUGS (1)
  1. ONGLYZA 5MG ASTRAZENECA [Suspect]

REACTIONS (6)
  - Exfoliative rash [None]
  - Oral pain [None]
  - Lip pain [None]
  - Rash erythematous [None]
  - Toxic epidermal necrolysis [None]
  - Stevens-Johnson syndrome [None]
